FAERS Safety Report 4608939-9 (Version None)
Quarter: 2005Q1

REPORT INFORMATION
  Report Type: 
  Country: None (occurrence: None)
  Receive Date: 20050311
  Receipt Date: 20050302
  Transmission Date: 20050727
  Serious: Yes (Hospitalization, Disabling)
  Sender: FDA-Public Use
  Company Number: HQWYE849704MAR05

PATIENT
  Age: 79 Year
  Sex: Female

DRUGS (1)
  1. EFECTIN ER (VENLAFAXINE HYDROCHLORIDE CAPSULE, EXTENDED RELEASE) [Suspect]
     Indication: BIPOLAR DISORDER
     Dosage: 225 MG 1X PER 1 DAY
     Route: 048
     Dates: start: 20011031, end: 20050225

REACTIONS (1)
  - ISCHAEMIC STROKE [None]
